FAERS Safety Report 15899626 (Version 1)
Quarter: 2019Q1

REPORT INFORMATION
  Report Type: Spontaneous
  Country: US (occurrence: US)
  Receive Date: 20190131
  Receipt Date: 20190131
  Transmission Date: 20190417
  Serious: Yes (Other)
  Sender: FDA-Public Use
  Company Number: None

PATIENT
  Age: 10 Year
  Sex: Female
  Weight: 78.75 kg

DRUGS (8)
  1. CULTURELLE [Concomitant]
     Active Substance: LACTOBACILLUS RHAMNOSUS
  2. MONTELUKAST 5 MG CHEWABLE (GENERIC FOR SINGULAIR) [Suspect]
     Active Substance: MONTELUKAST SODIUM
     Indication: ASTHMA
     Dosage: QUANTITY:180 TABLET(S); AT BEDTIME?
     Route: 048
     Dates: start: 20170822, end: 20190120
  3. VENTOLIN [Concomitant]
     Active Substance: ALBUTEROL SULFATE
  4. ELDERRBERRY [Concomitant]
  5. NORDIC NATURAL^S DHA SUPPLEMENT [Concomitant]
  6. FLONASE [Concomitant]
     Active Substance: FLUTICASONE PROPIONATE
  7. CHILDREN^S VITAMINS [Concomitant]
  8. FLOVENT HFA [Concomitant]
     Active Substance: FLUTICASONE PROPIONATE

REACTIONS (6)
  - Suicidal ideation [None]
  - Anxiety [None]
  - Anger [None]
  - Depression [None]
  - Chest pain [None]
  - Gastrointestinal disorder [None]

NARRATIVE: CASE EVENT DATE: 20190119
